FAERS Safety Report 8376768-9 (Version None)
Quarter: 2012Q2

REPORT INFORMATION
  Report Type: 
  Country: None (occurrence: None)
  Receive Date: 20120522
  Receipt Date: 20120320
  Transmission Date: 20120825
  Serious: No
  Sender: FDA-Public Use
  Company Number: US-BRISTOL-MYERS SQUIBB COMPANY-16397390

PATIENT
  Age: 4 Decade
  Sex: Male

DRUGS (2)
  1. ONGLYZA [Suspect]
  2. METFORMIN HCL [Suspect]

REACTIONS (2)
  - PRURITUS [None]
  - RASH [None]
